FAERS Safety Report 5056855-3 (Version None)
Quarter: 2006Q2

REPORT INFORMATION
  Report Type: 
  Country: None (occurrence: None)
  Receive Date: 20060622
  Receipt Date: 20050506
  Transmission Date: 20061013
  Serious: Yes (Death, Other)
  Sender: FDA-Public Use
  Company Number: US-JNJFOC-20050502160

PATIENT
  Age: 56 Year
  Sex: Female

DRUGS (6)
  1. DURAGESIC-100 [Suspect]
     Indication: DRUG USE FOR UNKNOWN INDICATION
     Dosage: 100 UG/HR
  2. TOPAMAX [Concomitant]
  3. DESYREL [Concomitant]
  4. TEGRETOL [Concomitant]
  5. PHENERGAN (PROMETHAZINE HYDROCHLORIDE) [Concomitant]
  6. ATROPINE [Concomitant]

REACTIONS (2)
  - DRUG ABUSER [None]
  - DRUG TOXICITY [None]
